FAERS Safety Report 12544356 (Version 6)
Quarter: 2022Q2

REPORT INFORMATION
  Report Type: Spontaneous
  Country: US (occurrence: US)
  Receive Date: 20160711
  Receipt Date: 20220428
  Transmission Date: 20220721
  Serious: No
  Sender: FDA-Public Use
  Company Number: US-PFIZER INC-2016301700

PATIENT
  Age: 9 Decade
  Sex: Female

DRUGS (3)
  1. XALKORI [Suspect]
     Active Substance: CRIZOTINIB
     Indication: Lymphoma
     Dosage: 200 MG, CAPSULES, ONE IN THE MORNING AND ONE IN THE EVENING
     Route: 048
     Dates: start: 2013
  2. XALKORI [Suspect]
     Active Substance: CRIZOTINIB
     Dosage: 200 MG
  3. ONDANSETRON [Concomitant]
     Active Substance: ONDANSETRON
     Dosage: UNK
     Dates: start: 2013

REACTIONS (5)
  - Off label use [Unknown]
  - Hypoacusis [Not Recovered/Not Resolved]
  - Condition aggravated [Unknown]
  - Peripheral swelling [Not Recovered/Not Resolved]
  - Joint swelling [Not Recovered/Not Resolved]

NARRATIVE: CASE EVENT DATE: 20160101
